FAERS Safety Report 8595372-0 (Version None)
Quarter: 2012Q3

REPORT INFORMATION
  Report Type: 
  Country: None (occurrence: None)
  Receive Date: 20120807
  Receipt Date: 20120807
  Transmission Date: 20120928
  Serious: Yes (Other)
  Sender: FDA-Public Use
  Company Number: None

PATIENT
  Age: 37 Year
  Sex: Female
  Weight: 59 kg

DRUGS (1)
  1. MAGNEVIST [Suspect]
     Indication: NUCLEAR MAGNETIC RESONANCE IMAGING
     Dosage: 12 MG ONE TIME DOSE INTRAVENOUSLY
     Route: 042
     Dates: start: 20120628

REACTIONS (3)
  - FEELING HOT [None]
  - PRURITUS [None]
  - CONTRAST MEDIA ALLERGY [None]
